FAERS Safety Report 8005004-8 (Version None)
Quarter: 2011Q4

REPORT INFORMATION
  Report Type: 
  Country: None (occurrence: None)
  Receive Date: 20111223
  Receipt Date: 20111215
  Transmission Date: 20120403
  Serious: Yes (Other)
  Sender: FDA-Public Use
  Company Number: US-JNJFOC-20111110502

PATIENT
  Sex: Female

DRUGS (1)
  1. RISPERDAL [Suspect]
     Indication: PRODUCT USED FOR UNKNOWN INDICATION
     Route: 065

REACTIONS (8)
  - TARDIVE DYSKINESIA [None]
  - PRODUCT QUALITY ISSUE [None]
  - ASTHENIA [None]
  - DEMENTIA [None]
  - FEELING ABNORMAL [None]
  - DRUG DOSE OMISSION [None]
  - CONSTIPATION [None]
  - DIZZINESS [None]
